FAERS Safety Report 5939155-6 (Version None)
Quarter: 2008Q4

REPORT INFORMATION
  Report Type: 
  Country: None (occurrence: None)
  Receive Date: 20081103
  Receipt Date: 20081023
  Transmission Date: 20090506
  Serious: Yes (Death, Life-Threatening, Hospitalization)
  Sender: FDA-Public Use
  Company Number: SI-BAXTER-2008BH006363

PATIENT
  Age: 53 Year
  Sex: Female

DRUGS (2)
  1. EXTRANEAL [Suspect]
     Indication: PERITONEAL DIALYSIS
     Dosage: DOSE UNIT:UNKNOWN
     Route: 033
     Dates: start: 19921101, end: 20070601
  2. EXTRANEAL [Suspect]
     Indication: REFLUX NEPHROPATHY
     Dosage: DOSE UNIT:UNKNOWN
     Route: 033
     Dates: start: 19921101, end: 20070601

REACTIONS (13)
  - ABDOMINAL MASS [None]
  - ANOREXIA [None]
  - DIARRHOEA [None]
  - FATIGUE [None]
  - FUNGAL PERITONITIS [None]
  - HAEMORRHAGIC ASCITES [None]
  - ILEUS [None]
  - MULTI-ORGAN FAILURE [None]
  - NAUSEA [None]
  - PERITONITIS BACTERIAL [None]
  - SCLEROSING ENCAPSULATING PERITONITIS [None]
  - SEPTIC SHOCK [None]
  - VOMITING [None]
